FAERS Safety Report 10565211 (Version 2)
Quarter: 2014Q4

REPORT INFORMATION
  Report Type: Spontaneous
  Country: DE (occurrence: None)
  Receive Date: 20141103
  Receipt Date: 20141124
  Transmission Date: 20150529
  Serious: Yes (Other)
  Sender: FDA-Public Use
  Company Number: 2014053324

PATIENT
  Age: 36 Year
  Sex: Female
  Weight: 85 kg

DRUGS (4)
  1. FRAGMIN P FORTE [Suspect]
     Active Substance: DALTEPARIN SODIUM
     Indication: ANTIPHOSPHOLIPID SYNDROME
     Dosage: 5000 IU, 1XDAY, SUBCUTANEOUS
     Route: 058
     Dates: start: 20131217, end: 20140821
  2. FRAGMIN P FORTE [Suspect]
     Active Substance: DALTEPARIN SODIUM
     Indication: FACTOR V LEIDEN MUTATION
     Dosage: 5000 IU, 1XDAY, SUBCUTANEOUS
     Route: 058
     Dates: start: 20131217, end: 20140821
  3. ASS(ACTYSALICYLIC ACID) [Concomitant]
  4. KEIMAX(CEFTIBUTEN) FILM-COATED TABLET [Concomitant]

REACTIONS (14)
  - Eclampsia [None]
  - Injection site haemorrhage [None]
  - Liver disorder [None]
  - Maternal exposure during pregnancy [None]
  - Varicose vein [None]
  - Haemorrhoids [None]
  - Pruritus [None]
  - Headache [None]
  - Injection site haematoma [None]
  - Oedema [None]
  - Hernia [None]
  - Renal disorder [None]
  - Injection site pain [None]
  - Pre-eclampsia [None]
